FAERS Safety Report 11787383 (Version 3)
Quarter: 2017Q1

REPORT INFORMATION
  Report Type: Spontaneous
  Country: US (occurrence: US)
  Receive Date: 20151130
  Receipt Date: 20170213
  Transmission Date: 20170428
  Serious: Yes (Death, Hospitalization, Other)
  Sender: FDA-Public Use
  Company Number: US-PFIZER INC-2015399974

PATIENT
  Age: 82 Year
  Sex: Female

DRUGS (20)
  1. DIGOXIN. [Concomitant]
     Active Substance: DIGOXIN
     Dosage: 125 UG, ALTERNATE DAY
     Route: 048
     Dates: start: 20150716
  2. FUROSEMIDE. [Concomitant]
     Active Substance: FUROSEMIDE
     Dosage: 20MG, 2X DAILY (AM-PM)
  3. REVATIO [Suspect]
     Active Substance: SILDENAFIL CITRATE
     Indication: DYSPNOEA
     Dosage: 80 MG, 3X/DAY
     Route: 048
  4. REVATIO [Suspect]
     Active Substance: SILDENAFIL CITRATE
     Dosage: 20 MG, 3X/DAY (4AM-4PM, 4 MID DAY)
     Route: 048
  5. COLCRYS [Concomitant]
     Active Substance: COLCHICINE
     Dosage: 0.3 MG, ALTERNATE DAY (1/2 TAB EVERY OTHER DAY PM)
     Route: 048
  6. PREDNISONE. [Concomitant]
     Active Substance: PREDNISONE
     Dosage: 10 MG, AS NEEDED
  7. REMODULIN [Concomitant]
     Active Substance: TREPROSTINIL
     Indication: PULMONARY ARTERIAL HYPERTENSION
     Dosage: 1.8 ML, ( 5 MG/ML, 2X/WEEK  (EVERY 3 DAYS (1.8ML); AM (PUMP RATE 0.018ML/HR) AM))
  8. REMODULIN [Concomitant]
     Active Substance: TREPROSTINIL
     Dosage: UNK, 1X/DAY; 24 HOURS A DAY
     Route: 058
  9. OPSUMIT [Concomitant]
     Active Substance: MACITENTAN
     Dosage: 10 MG, 1X/DAY (AM)
     Route: 048
  10. ELIQUIS [Concomitant]
     Active Substance: APIXABAN
     Dosage: 2.5 MG, 2X/DAY (AM-PM)
     Dates: start: 20160909
  11. NORVASC [Concomitant]
     Active Substance: AMLODIPINE BESYLATE
     Dosage: 5 MG, DAILY
     Route: 048
     Dates: start: 20150716
  12. ASPIRIN. [Concomitant]
     Active Substance: ASPIRIN
     Dosage: 81 MG, 1X/DAY (AM)
     Route: 048
     Dates: start: 20150218
  13. FUROSEMIDE. [Concomitant]
     Active Substance: FUROSEMIDE
     Dosage: 20 MG, DAILY (TAKE AN ADDITIONAL DOSE IN THE AFTERNOON ON MONDAY, WEDNESDAY AND FRIDAY)
     Dates: start: 20150312
  14. TYLENOL [Concomitant]
     Active Substance: ACETAMINOPHEN
     Dosage: 500 MG, 1X DAILY (PM)
  15. REVATIO [Suspect]
     Active Substance: SILDENAFIL CITRATE
     Indication: PULMONARY ARTERIAL HYPERTENSION
     Dosage: UNK
     Route: 048
  16. DIGOXIN. [Concomitant]
     Active Substance: DIGOXIN
     Dosage: 125 MCG; 1X ON WED+SUNDAY IN AM AM
     Route: 048
  17. AMLODIPINE [Concomitant]
     Active Substance: AMLODIPINE BESYLATE
     Dosage: 5 MG, 1X/DAY (AM)
  18. REVATIO [Suspect]
     Active Substance: SILDENAFIL CITRATE
     Dosage: 80 MG, 3X/DAY
     Route: 048
  19. VENTAVIS [Concomitant]
     Active Substance: ILOPROST
     Dosage: 20 UG/ML
     Route: 045
  20. METOPROLOL TARTRATE. [Concomitant]
     Active Substance: METOPROLOL TARTRATE
     Dosage: 25 MG, 2X/DAY (AM-PM)
     Route: 048

REACTIONS (5)
  - Cardiac index decreased [Unknown]
  - Product use issue [Unknown]
  - Death [Fatal]
  - Vascular resistance pulmonary increased [Unknown]
  - Dyspnoea [Unknown]

NARRATIVE: CASE EVENT DATE: 20170202
